FAERS Safety Report 10613271 (Version 3)
Quarter: 2019Q3

REPORT INFORMATION
  Report Type: Spontaneous
  Country: US (occurrence: US)
  Receive Date: 20141128
  Receipt Date: 20190703
  Transmission Date: 20191004
  Serious: Yes (Hospitalization, Other)
  Sender: FDA-Public Use
  Company Number: US-ALEXION PHARMACEUTICALS INC-A201404413

PATIENT
  Age: 36 Year
  Sex: Female

DRUGS (5)
  1. SOLIRIS [Suspect]
     Active Substance: ECULIZUMAB
     Indication: ANTIPHOSPHOLIPID SYNDROME
     Dosage: 900 MG, QW
     Route: 042
  2. SOLIRIS [Suspect]
     Active Substance: ECULIZUMAB
     Indication: OFF LABEL USE
     Dosage: 1200 MG, Q2W
     Route: 042
  3. PREDNISONE. [Concomitant]
     Active Substance: PREDNISONE
     Indication: ANTIPHOSPHOLIPID SYNDROME
     Route: 065
  4. CYCLOPHOSPHAMIDE. [Concomitant]
     Active Substance: CYCLOPHOSPHAMIDE
     Indication: ANTIPHOSPHOLIPID SYNDROME
     Route: 065
  5. HEPARIN [Suspect]
     Active Substance: HEPARIN SODIUM
     Indication: ANTICOAGULANT THERAPY
     Route: 058

REACTIONS (2)
  - Off label use [Unknown]
  - Activated partial thromboplastin time prolonged [Recovered/Resolved]
